FAERS Safety Report 5416577-3 (Version None)
Quarter: 2007Q3

REPORT INFORMATION
  Report Type: 
  Country: None (occurrence: None)
  Receive Date: 20070814
  Receipt Date: 20070814
  Transmission Date: 20080115
  Serious: Yes (Hospitalization)
  Sender: FDA-Public Use
  Company Number: None

PATIENT
  Age: 55 Year
  Sex: Female
  Weight: 72.5755 kg

DRUGS (1)
  1. TOPAMAX [Suspect]
     Indication: SUICIDE ATTEMPT
     Dosage: 2 X DAILY PO
     Route: 048
     Dates: start: 20041227, end: 20050113

REACTIONS (5)
  - ACTIVITIES OF DAILY LIVING IMPAIRED [None]
  - ALOPECIA [None]
  - DISTURBANCE IN ATTENTION [None]
  - HALLUCINATION [None]
  - HALLUCINATION, AUDITORY [None]
